FAERS Safety Report 18321287 (Version 3)
Quarter: 2021Q3

REPORT INFORMATION
  Report Type: Spontaneous
  Country: DE (occurrence: DE)
  Receive Date: 20200928
  Receipt Date: 20210708
  Transmission Date: 20211014
  Serious: Yes (Death, Life-Threatening, Hospitalization)
  Sender: FDA-Public Use
  Company Number: DE-TEVA-2020-DE-1831254

PATIENT
  Age: 76 Year
  Sex: Male

DRUGS (18)
  1. TORASEMID [Suspect]
     Active Substance: TORSEMIDE
     Dosage: 10 MILLIGRAM DAILY;  1?0?0?0,
     Route: 048
  2. ISONIAZID. [Interacting]
     Active Substance: ISONIAZID
     Dosage: NK MG,
     Dates: start: 20200711
  3. LEVOTHYROXIN?NATRIUM [Concomitant]
     Active Substance: LEVOTHYROXINE SODIUM
     Dosage: 175 MICROGRAM DAILY;  1?0?0?0,
     Route: 048
  4. METFORMIN [Concomitant]
     Active Substance: METFORMIN HYDROCHLORIDE
     Dosage: 3000 MILLIGRAM DAILY;  1?1?1?0,
     Route: 048
  5. AMLODIPIN [Concomitant]
     Active Substance: AMLODIPINE BESYLATE
     Dosage: 10 MILLIGRAM DAILY; 1?0?0?0,
     Route: 048
  6. CANDESARTAN. [Concomitant]
     Active Substance: CANDESARTAN
     Dosage: 32 MILLIGRAM DAILY; 16 MG, 1?0?1?0,
     Route: 048
  7. PYRAZINAMID [Interacting]
     Active Substance: PYRAZINAMIDE
     Dosage: NK MG,
     Dates: start: 20200711
  8. COLECALCIFEROL (VITAMIN D) [Concomitant]
     Active Substance: CHOLECALCIFEROL
     Dosage: 5 DOSAGE FORMS DAILY; 20,000 IU, 5?0?0?0,
     Route: 048
  9. MAGALDRAT [Concomitant]
     Active Substance: MAGALDRATE
     Dosage: 1600 MILLIGRAM DAILY;  0?0?1?0
     Route: 048
  10. METOPROLOL. [Concomitant]
     Active Substance: METOPROLOL
     Dosage: 190 MILLIGRAM DAILY; 1?0?1?0,SUSTAINED?RELEASE TABLETS
     Route: 048
  11. RIFAMPICIN [Interacting]
     Active Substance: RIFAMPIN
     Dosage: NK MG,MEDICATION ERRORS
     Dates: start: 20200711
  12. PANTOPRAZOL [Concomitant]
     Active Substance: PANTOPRAZOLE SODIUM
     Dosage: 20 MILLIGRAM DAILY; 1?0?0?0,
     Route: 048
  13. GLYCOPYRRONIUMBROMID/INDACATEROL [Concomitant]
     Dosage: 1 DOSAGE FORMS DAILY; 43 | 85 UG, 1?0?0?0
     Route: 048
  14. APIXABAN [Interacting]
     Active Substance: APIXABAN
     Dosage: 10 MILLIGRAM DAILY;  1?0?1?0,MEDICATION ERRORS
     Route: 048
  15. TRIMBOW 87MIKROGRAMM/5MIKROGRAMM/9MIKROGRAMM [Concomitant]
     Dosage: 4 DOSAGE FORMS DAILY; 87 | 5 | 9 UG, 2?0?2?0,
     Route: 055
  16. ETHAMBUTOL [Interacting]
     Active Substance: ETHAMBUTOL HYDROCHLORIDE
     Dosage: NK MG,
     Dates: start: 20200711
  17. NEPRESOL [Concomitant]
     Dosage: 3 DOSAGE FORMS DAILY; NK MG, 1?1?1?0,
     Route: 048
  18. SITAGLIPTIN [Concomitant]
     Active Substance: SITAGLIPTIN
     Dosage: 100 MILLIGRAM DAILY; 1?0?0?0,
     Route: 048

REACTIONS (10)
  - Cough [Unknown]
  - General physical health deterioration [Unknown]
  - Labelled drug-drug interaction medication error [Unknown]
  - Night sweats [Unknown]
  - Pyrexia [Unknown]
  - Product monitoring error [Unknown]
  - Haemoptysis [Unknown]
  - Labelled drug-drug interaction medication error [Unknown]
  - Fatigue [Unknown]
  - Condition aggravated [Unknown]

NARRATIVE: CASE EVENT DATE: 20200711
